FAERS Safety Report 21177782 (Version 4)
Quarter: 2023Q1

REPORT INFORMATION
  Report Type: Spontaneous
  Country: US (occurrence: US)
  Receive Date: 20220805
  Receipt Date: 20230328
  Transmission Date: 20230418
  Serious: No
  Sender: FDA-Public Use
  Company Number: US-PFIZER INC-PV202200036671

PATIENT
  Age: 75 Year
  Sex: Female
  Weight: 90.72 kg

DRUGS (2)
  1. IBRANCE [Suspect]
     Active Substance: PALBOCICLIB
     Indication: Breast cancer metastatic
     Dosage: ONCE DAILY FOR THREE WEEKS AND OFF A WEEK
     Dates: start: 2015
  2. LETROZOLE [Concomitant]
     Active Substance: LETROZOLE
     Indication: Metastases to bone
     Dosage: TINY ONE ONCE DAILY

REACTIONS (1)
  - Neoplasm recurrence [Unknown]
